FAERS Safety Report 9170397 (Version 1)
Quarter: 2013Q1

REPORT INFORMATION
  Report Type: Spontaneous
  Country: US (occurrence: US)
  Receive Date: 20130319
  Receipt Date: 20130319
  Transmission Date: 20140127
  Serious: Yes (Life-Threatening, Other)
  Sender: FDA-Public Use
  Company Number: PHEH2013US006196

PATIENT
  Sex: Female
  Weight: 70 kg

DRUGS (2)
  1. EXJADE [Suspect]
     Indication: SICKLE CELL ANAEMIA
     Dosage: 1500 MG, QD
     Route: 048
     Dates: start: 20100920
  2. HYDREA [Concomitant]

REACTIONS (5)
  - Chest pain [Recovered/Resolved]
  - Blood pressure decreased [Unknown]
  - Haemoglobin decreased [Unknown]
  - Pruritus [Unknown]
  - Constipation [Unknown]
